FAERS Safety Report 11986521 (Version 1)
Quarter: 2016Q1

REPORT INFORMATION
  Report Type: Spontaneous
  Country: US (occurrence: US)
  Receive Date: 20160202
  Receipt Date: 20160202
  Transmission Date: 20160526
  Serious: No
  Sender: FDA-Public Use
  Company Number: US-UCBSA-2015000021

PATIENT
  Age: 19 Year
  Sex: Male

DRUGS (1)
  1. KEPPRA [Suspect]
     Active Substance: LEVETIRACETAM
     Indication: SEIZURE
     Dosage: UNKNOWN DOSE AND FREQUENCY

REACTIONS (7)
  - Somnolence [Unknown]
  - Fall [Unknown]
  - Gait disturbance [Unknown]
  - Abnormal behaviour [Unknown]
  - Growth accelerated [Unknown]
  - Clumsiness [Unknown]
  - Drooling [Unknown]
